FAERS Safety Report 4318547-5 (Version None)
Quarter: 2004Q1

REPORT INFORMATION
  Report Type: 
  Country: None (occurrence: None)
  Receive Date: 20040318
  Receipt Date: 20040311
  Transmission Date: 20041129
  Serious: Yes (Hospitalization)
  Sender: FDA-Public Use
  Company Number: PHBS2004BR03429

PATIENT
  Age: 40 Year
  Sex: Female

DRUGS (1)
  1. TRILEPTAL [Suspect]
     Indication: NEUROPATHIC PAIN
     Route: 048
     Dates: end: 20040201

REACTIONS (1)
  - PANCREATITIS [None]
